APPROVED DRUG PRODUCT: ICATIBANT ACETATE
Active Ingredient: ICATIBANT ACETATE
Strength: EQ 30MG BASE/3ML (EQ 10MG BASE/ML)
Dosage Form/Route: INJECTABLE;SUBCUTANEOUS
Application: A213222 | Product #001
Applicant: GLENMARK PHARMACEUTICALS LTD
Approved: May 21, 2021 | RLD: No | RS: No | Type: DISCN